FAERS Safety Report 13277176 (Version 1)
Quarter: 2017Q1

REPORT INFORMATION
  Report Type: Spontaneous
  Country: NL (occurrence: NL)
  Receive Date: 20170228
  Receipt Date: 20170228
  Transmission Date: 20170428
  Serious: Yes (Other)
  Sender: FDA-Public Use
  Company Number: NL-TEVA-743680ACC

PATIENT
  Sex: Female

DRUGS (1)
  1. METHOTREXATE TABLET 10MG [Suspect]
     Active Substance: METHOTREXATE
     Indication: RHEUMATOID ARTHRITIS
     Dosage: 25MG, 1 TIME PER WEEK
     Route: 048
     Dates: start: 20150629, end: 20161219

REACTIONS (1)
  - Polyneuropathy [Unknown]
